FAERS Safety Report 26210474 (Version 1)
Quarter: 2025Q4

REPORT INFORMATION
  Report Type: Report from Study
  Country: US (occurrence: US)
  Receive Date: 20251229
  Receipt Date: 20251229
  Transmission Date: 20260117
  Serious: Yes (Other)
  Sender: ABBVIE
  Company Number: US-ABBVIE-6606831

PATIENT
  Age: 25 Year
  Sex: Female

DRUGS (2)
  1. HUMIRA [Suspect]
     Active Substance: ADALIMUMAB
     Indication: Crohn^s disease
     Route: 058
     Dates: start: 2013, end: 2023
  2. AMOXICILLIN [Suspect]
     Active Substance: AMOXICILLIN
     Indication: Product used for unknown indication
     Route: 065

REACTIONS (31)
  - Small intestinal resection [Unknown]
  - Crohn^s disease [Unknown]
  - Anxiety [Unknown]
  - Pyoderma [Unknown]
  - Neuropathy peripheral [Unknown]
  - Road traffic accident [Unknown]
  - Fibromyalgia [Unknown]
  - Temperature intolerance [Unknown]
  - Memory impairment [Unknown]
  - Alopecia [Unknown]
  - Therapeutic product effect decreased [Unknown]
  - Cardiac infection [Unknown]
  - Blood sodium decreased [Unknown]
  - Blood electrolytes decreased [Unknown]
  - Contusion [Unknown]
  - Gastrooesophageal reflux disease [Unknown]
  - Aspiration [Unknown]
  - Colectomy [Unknown]
  - Urticaria [Unknown]
  - Spinal stenosis [Unknown]
  - Body height decreased [Unknown]
  - Ulcer [Unknown]
  - Heart rate increased [Unknown]
  - Cardiac disorder [Unknown]
  - Head injury [Unknown]
  - Folliculitis [Unknown]
  - Ear infection [Unknown]
  - Hypersensitivity [Unknown]
  - Throat tightness [Unknown]
  - Deafness unilateral [Unknown]
  - Spondylitis [Unknown]

NARRATIVE: CASE EVENT DATE: 20140101
